FAERS Safety Report 5339816-6 (Version None)
Quarter: 2007Q2

REPORT INFORMATION
  Report Type: 
  Country: None (occurrence: None)
  Receive Date: 20070524
  Receipt Date: 20070515
  Transmission Date: 20071010
  Serious: Yes (Other)
  Sender: FDA-Public Use
  Company Number: CHPA2007US06036

PATIENT
  Sex: Male

DRUGS (1)
  1. EXCEDRIN (MIGRAINE) [Suspect]
     Indication: HEADACHE
     Dosage: 1-3 TABLETS, QD, ORAL
     Route: 048

REACTIONS (2)
  - DRUG DEPENDENCE [None]
  - HEADACHE [None]
